FAERS Safety Report 4524936-6 (Version None)
Quarter: 2004Q4

REPORT INFORMATION
  Report Type: 
  Country: None (occurrence: None)
  Receive Date: 20041010
  Receipt Date: 20041206
  Transmission Date: 20050328
  Serious: Yes (Hospitalization)
  Sender: FDA-Public Use
  Company Number: 04-12-1691

PATIENT
  Age: 63 Year
  Sex: Male

DRUGS (1)
  1. CLOZAPINE [Suspect]
     Dosage: 300-400 QD ORAL
     Route: 048
     Dates: start: 20000701

REACTIONS (2)
  - BLOOD POTASSIUM DECREASED [None]
  - PNEUMONIA [None]
